FAERS Safety Report 6170189-5 (Version None)
Quarter: 2009Q2

REPORT INFORMATION
  Report Type: 
  Country: None (occurrence: None)
  Receive Date: 20090427
  Receipt Date: 20090427
  Transmission Date: 20091009
  Serious: Yes (Death)
  Sender: FDA-Public Use
  Company Number: None

PATIENT
  Sex: Female
  Weight: 81.6475 kg

DRUGS (2)
  1. SUMATRIPTAN SUCCINATE [Suspect]
     Indication: MIGRAINE
     Dosage: 1/DAY AS NEEDED MOUTH
     Route: 048
     Dates: start: 20040101
  2. CITALOPRAM HYDROBROMIDE [Suspect]
     Dosage: 1/DAY MOUTH
     Route: 048
     Dates: start: 20040101

REACTIONS (10)
  - ANAEMIA [None]
  - CYANOSIS [None]
  - DYSPNOEA [None]
  - FALL [None]
  - HYPERHIDROSIS [None]
  - HYPERVENTILATION [None]
  - INTRA-ABDOMINAL HAEMORRHAGE [None]
  - PULSE ABSENT [None]
  - RESPIRATORY ARREST [None]
  - SEROTONIN SYNDROME [None]
